FAERS Safety Report 5114946-2 (Version None)
Quarter: 2006Q3

REPORT INFORMATION
  Report Type: 
  Country: None (occurrence: None)
  Receive Date: 20060925
  Receipt Date: 20060925
  Transmission Date: 20061208
  Serious: Yes (Other)
  Sender: FDA-Public Use
  Company Number: None

PATIENT
  Age: 30 Year
  Sex: Female
  Weight: 158.759 kg

DRUGS (2)
  1. SERTRALINE HCL [Suspect]
     Indication: GENERALISED ANXIETY DISORDER
     Dosage: 100MG   ONCE DAILY   PO
     Route: 048
     Dates: start: 20060905, end: 20060922
  2. SERTRALINE HCL [Suspect]
     Indication: POSTPARTUM DEPRESSION
     Dosage: 100MG   ONCE DAILY   PO
     Route: 048
     Dates: start: 20060905, end: 20060922

REACTIONS (9)
  - ANXIETY [None]
  - FEAR [None]
  - FEELING ABNORMAL [None]
  - HALLUCINATION, VISUAL [None]
  - INSOMNIA [None]
  - PANIC ATTACK [None]
  - PHARMACEUTICAL PRODUCT COMPLAINT [None]
  - THERAPEUTIC RESPONSE UNEXPECTED WITH DRUG SUBSTITUTION [None]
  - THINKING ABNORMAL [None]
